FAERS Safety Report 12092459 (Version 1)
Quarter: 2016Q1

REPORT INFORMATION
  Report Type: Spontaneous
  Country: US (occurrence: None)
  Receive Date: 20160218
  Receipt Date: 20160218
  Transmission Date: 20160526
  Serious: Yes (Disabling)
  Sender: FDA-Public Use
  Company Number: None

PATIENT
  Age: 36 Year
  Sex: Female
  Weight: 58.97 kg

DRUGS (2)
  1. PRENATAL VITAMINS [Concomitant]
     Active Substance: VITAMINS
  2. CIPROFLOXACIN HCL 500 MG [Suspect]
     Active Substance: CIPROFLOXACIN HYDROCHLORIDE
     Indication: URINARY TRACT INFECTION
     Dates: start: 20151217, end: 20151222

REACTIONS (46)
  - Vaginal discharge [None]
  - Tinnitus [None]
  - Anxiety [None]
  - Abdominal pain upper [None]
  - Joint crepitation [None]
  - Urinary tract disorder [None]
  - Communication disorder [None]
  - Muscle twitching [None]
  - Sensory disturbance [None]
  - Memory impairment [None]
  - Rash [None]
  - Non-24-hour sleep-wake disorder [None]
  - Skin wrinkling [None]
  - Ear discomfort [None]
  - Arthralgia [None]
  - Amenorrhoea [None]
  - Vision blurred [None]
  - Palpitations [None]
  - Back pain [None]
  - Pain [None]
  - Chills [None]
  - Muscle disorder [None]
  - Dizziness [None]
  - Peripheral coldness [None]
  - Dyspnoea [None]
  - Neuropathy peripheral [None]
  - Mental impairment [None]
  - Feeling abnormal [None]
  - Muscle tightness [None]
  - Faeces discoloured [None]
  - Hypoaesthesia oral [None]
  - Muscle fatigue [None]
  - Tremor [None]
  - Heart rate increased [None]
  - Muscular weakness [None]
  - Asthenia [None]
  - Hypoaesthesia [None]
  - Movement disorder [None]
  - Headache [None]
  - Dry skin [None]
  - Pain in extremity [None]
  - Sleep disorder [None]
  - Reading disorder [None]
  - Paraesthesia [None]
  - Sensory loss [None]
  - Deafness unilateral [None]

NARRATIVE: CASE EVENT DATE: 20151217
